FAERS Safety Report 13327309 (Version 1)
Quarter: 2017Q1

REPORT INFORMATION
  Report Type: Spontaneous
  Country: US (occurrence: US)
  Receive Date: 20170313
  Receipt Date: 20170313
  Transmission Date: 20170428
  Serious: No
  Sender: FDA-Public Use
  Company Number: US-JNJFOC-20161211829

PATIENT
  Age: 81 Year
  Sex: Female
  Weight: 84.82 kg

DRUGS (2)
  1. WOMENS ROGAINE UNSCENTED [Suspect]
     Active Substance: MINOXIDIL
     Route: 061
  2. WOMENS ROGAINE UNSCENTED [Suspect]
     Active Substance: MINOXIDIL
     Indication: ALOPECIA
     Dosage: DOSAGE 1 1/2 CAPS
     Route: 061

REACTIONS (3)
  - Product formulation issue [Unknown]
  - Overdose [Unknown]
  - Incorrect product storage [Unknown]
